FAERS Safety Report 8409369-4 (Version None)
Quarter: 2012Q2

REPORT INFORMATION
  Report Type: 
  Country: None (occurrence: None)
  Receive Date: 20120605
  Receipt Date: 20120529
  Transmission Date: 20120825
  Serious: No
  Sender: FDA-Public Use
  Company Number: US-BIOGENIDEC-2012BI018976

PATIENT
  Age: 62 Year
  Sex: Female

DRUGS (1)
  1. TYSABRI [Suspect]
     Indication: MULTIPLE SCLEROSIS
     Route: 042
     Dates: start: 20111215

REACTIONS (6)
  - OEDEMA PERIPHERAL [None]
  - JOINT SWELLING [None]
  - FATIGUE [None]
  - HEMIPARESIS [None]
  - TEMPERATURE INTOLERANCE [None]
  - PYREXIA [None]
